FAERS Safety Report 7714117-7 (Version None)
Quarter: 2011Q3

REPORT INFORMATION
  Report Type: 
  Country: None (occurrence: None)
  Receive Date: 20110829
  Receipt Date: 20110823
  Transmission Date: 20111222
  Serious: Yes (Hospitalization)
  Sender: FDA-Public Use
  Company Number: IT-BRISTOL-MYERS SQUIBB COMPANY-15994791

PATIENT
  Age: 47 Year
  Sex: Female

DRUGS (2)
  1. IPILIMUMAB [Suspect]
     Indication: MALIGNANT MELANOMA
     Dosage: 1 DF = 276 UNITS NOS
     Route: 042
     Dates: start: 20110507, end: 20110726
  2. METOCLOPRAMIDE [Concomitant]
     Route: 042
     Dates: start: 20110817, end: 20110819

REACTIONS (1)
  - VOMITING [None]
